FAERS Safety Report 7246536-X (Version None)
Quarter: 2011Q1

REPORT INFORMATION
  Report Type: 
  Country: None (occurrence: None)
  Receive Date: 20110127
  Receipt Date: 20110117
  Transmission Date: 20110831
  Serious: Yes (Hospitalization)
  Sender: FDA-Public Use
  Company Number: FR-BIOGENIDEC-2010BI034066

PATIENT
  Age: 58 Year
  Sex: Female
  Weight: 80 kg

DRUGS (6)
  1. TEMESTA [Concomitant]
     Indication: INSOMNIA
     Route: 048
  2. STILNOX [Concomitant]
     Indication: INSOMNIA
     Route: 048
  3. ATENOLOL [Concomitant]
  4. TYSABRI [Suspect]
     Indication: MULTIPLE SCLEROSIS
     Route: 042
     Dates: start: 20080926
  5. MINIRIN [Concomitant]
  6. OXYBUTYNIN [Concomitant]
     Route: 048
     Dates: end: 20100927

REACTIONS (3)
  - KIDNEY INFECTION [None]
  - ANGIOMYOLIPOMA [None]
  - NEPHROLITHIASIS [None]
